FAERS Safety Report 6166532-3 (Version None)
Quarter: 2009Q2

REPORT INFORMATION
  Report Type: 
  Country: None (occurrence: None)
  Receive Date: 20090424
  Receipt Date: 20090415
  Transmission Date: 20091009
  Serious: Yes (Hospitalization)
  Sender: FDA-Public Use
  Company Number: BR-ELI_LILLY_AND_COMPANY-BR200904003430

PATIENT
  Sex: Female
  Weight: 63 kg

DRUGS (9)
  1. FORTEO [Suspect]
     Indication: OSTEOPOROSIS
     Dosage: UNK, UNKNOWN
     Route: 065
     Dates: start: 20090201
  2. SYNTHROID [Concomitant]
  3. OMEPRAZOL [Concomitant]
  4. PAMELOR [Concomitant]
  5. AMYTRIL [Concomitant]
  6. RIVOTRIL [Concomitant]
  7. CALCIUM [Concomitant]
  8. CYCLOBENZAPRINE [Concomitant]
  9. DIACEREIN [Concomitant]

REACTIONS (1)
  - FALL [None]
